FAERS Safety Report 17030504 (Version 1)
Quarter: 2019Q4

REPORT INFORMATION
  Report Type: Spontaneous
  Country: US (occurrence: US)
  Receive Date: 20191114
  Receipt Date: 20191114
  Transmission Date: 20200122
  Serious: No
  Sender: FDA-Public Use
  Company Number: US-ALLERGAN-1929609US

PATIENT
  Age: 65 Year
  Sex: Female
  Weight: 58.96 kg

DRUGS (5)
  1. VITAMINS                           /00067501/ [Concomitant]
     Active Substance: VITAMINS
  2. COMBIGAN [Suspect]
     Active Substance: BRIMONIDINE TARTRATE\TIMOLOL MALEATE
     Dosage: ACTUAL: ONE DROP AT NIGHT
     Route: 047
     Dates: start: 20190618, end: 20190619
  3. COMBIGAN [Suspect]
     Active Substance: BRIMONIDINE TARTRATE\TIMOLOL MALEATE
     Dosage: 1 GTT, BID
     Route: 047
     Dates: start: 201806
  4. COMBIGAN [Suspect]
     Active Substance: BRIMONIDINE TARTRATE\TIMOLOL MALEATE
     Indication: GLAUCOMA
     Dosage: ACTUAL: ONE DROP AT NIGHT
     Route: 047
     Dates: start: 20190709, end: 20190709
  5. COSOPT [Concomitant]
     Active Substance: DORZOLAMIDE HYDROCHLORIDE\TIMOLOL MALEATE
     Indication: GLAUCOMA
     Dosage: UNK
     Dates: start: 201906, end: 2019

REACTIONS (3)
  - Hyperkeratosis [Recovered/Resolved]
  - Eye swelling [Recovered/Resolved]
  - Skin exfoliation [Recovered/Resolved]

NARRATIVE: CASE EVENT DATE: 20190710
